FAERS Safety Report 16002408 (Version 1)
Quarter: 2019Q1

REPORT INFORMATION
  Report Type: Report from Study
  Country: None (occurrence: DE)
  Receive Date: 20190225
  Receipt Date: 20190225
  Transmission Date: 20190418
  Serious: Yes (Life-Threatening)
  Sender: FDA-Public Use
  Company Number: DE-ABBVIE-19S-062-2677925-00

PATIENT
  Sex: Male

DRUGS (1)
  1. DUODOPA [Suspect]
     Active Substance: CARBIDOPA\LEVODOPA
     Indication: PARKINSON^S DISEASE
     Dosage: MD: 8.0ML, CRD: 2.5ML/H, ED: 0.5ML
     Route: 058
     Dates: start: 20180904, end: 20190221

REACTIONS (2)
  - Terminal state [Not Recovered/Not Resolved]
  - General physical health deterioration [Not Recovered/Not Resolved]
